FAERS Safety Report 14217187 (Version 3)
Quarter: 2018Q1

REPORT INFORMATION
  Report Type: Spontaneous
  Country: JP (occurrence: JP)
  Receive Date: 20171122
  Receipt Date: 20180126
  Transmission Date: 20180508
  Serious: Yes (Disabling, Other)
  Sender: FDA-Public Use
  Company Number: JP-AMGEN-JPNSP2017174346

PATIENT
  Age: 69 Year
  Sex: Male

DRUGS (2)
  1. PARSABIV [Suspect]
     Active Substance: ETELCALCETIDE HYDROCHLORIDE
     Indication: HYPERPARATHYROIDISM SECONDARY
     Dosage: UNK
     Route: 042
     Dates: start: 201704, end: 2017
  2. OXAROL [Concomitant]
     Active Substance: MAXACALCITOL
     Dosage: UNK

REACTIONS (2)
  - Pruritus [Recovered/Resolved]
  - Shunt occlusion [Unknown]

NARRATIVE: CASE EVENT DATE: 2017
